FAERS Safety Report 5336342-5 (Version None)
Quarter: 2007Q2

REPORT INFORMATION
  Report Type: 
  Country: None (occurrence: None)
  Receive Date: 20070523
  Receipt Date: 20070511
  Transmission Date: 20071010
  Serious: Yes (Hospitalization)
  Sender: FDA-Public Use
  Company Number: 233844K07USA

PATIENT
  Age: 43 Year
  Sex: Female

DRUGS (3)
  1. REBIF [Suspect]
     Indication: MULTIPLE SCLEROSIS
     Dosage: 44 MCG, 3 IN 1 WEEKS, SUBCUTANEOUS
     Route: 058
     Dates: start: 20070307
  2. STEROIDS (CORTICOSTEROID NOS) [Suspect]
     Dosage: 1000 MG, 1 IN 1 DAYS, INTRAVENOUS (NOT OTHERWISE SPECIFIED)
     Route: 042
     Dates: start: 20070314
  3. PREDNISONE [Suspect]

REACTIONS (6)
  - ANXIETY [None]
  - BIPOLAR DISORDER [None]
  - DIPLOPIA [None]
  - HALLUCINATION, AUDITORY [None]
  - NERVOUSNESS [None]
  - SELF INJURIOUS BEHAVIOUR [None]
